FAERS Safety Report 7725684-1 (Version None)
Quarter: 2011Q3

REPORT INFORMATION
  Report Type: 
  Country: None (occurrence: None)
  Receive Date: 20110902
  Receipt Date: 20110830
  Transmission Date: 20111222
  Serious: Yes (Death, Other)
  Sender: FDA-Public Use
  Company Number: PHHY2011CA59421

PATIENT
  Sex: Male

DRUGS (6)
  1. BENZTROPINE MESYLATE [Concomitant]
     Dosage: 2 MG, BID
  2. CLONAZEPAM [Concomitant]
     Dosage: 1 MG, QHS
  3. CLOZAPINE [Suspect]
     Indication: SCHIZOPHRENIA
     Dates: start: 19920804
  4. CLOZAPINE [Suspect]
     Dosage: 300 MG, QHS
     Route: 048
     Dates: start: 19930101
  5. NOZINAN [Concomitant]
     Dosage: 25 MG, HS
  6. CLOZAPINE [Suspect]
     Dates: start: 20110616

REACTIONS (2)
  - PSYCHOTIC DISORDER [None]
  - DEATH [None]
